FAERS Safety Report 7657767-9 (Version None)
Quarter: 2011Q3

REPORT INFORMATION
  Report Type: 
  Country: None (occurrence: None)
  Receive Date: 20110805
  Receipt Date: 20110725
  Transmission Date: 20111222
  Serious: Yes (Other)
  Sender: FDA-Public Use
  Company Number: US-BIOGENIDEC-2011BI000489

PATIENT
  Age: 29 Year
  Sex: Female

DRUGS (5)
  1. TYSABRI [Suspect]
     Indication: MULTIPLE SCLEROSIS
     Route: 042
     Dates: start: 20090312, end: 20101012
  2. ASPIRIN [Concomitant]
  3. PRENATAL VITAMINS [Concomitant]
  4. TYSABRI [Suspect]
     Route: 042
     Dates: start: 20080225, end: 20080814
  5. LOVENOX [Concomitant]
     Dates: start: 20101101

REACTIONS (3)
  - PREGNANCY [None]
  - CAESAREAN SECTION [None]
  - MATERNAL EXPOSURE DURING PREGNANCY [None]
